FAERS Safety Report 5605439-4 (Version None)
Quarter: 2008Q1

REPORT INFORMATION
  Report Type: 
  Country: None (occurrence: None)
  Receive Date: 20080125
  Receipt Date: 20080125
  Transmission Date: 20080703
  Serious: No
  Sender: FDA-Public Use
  Company Number: None

PATIENT
  Age: 73 Year
  Sex: Female
  Weight: 65.318 kg

DRUGS (2)
  1. VYTORIN [Suspect]
     Indication: BLOOD CHOLESTEROL INCREASED
     Dosage: 1 DAILY BEDTIME PO
     Route: 048
     Dates: start: 20060210, end: 20071015
  2. VYTORIN [Suspect]
     Indication: STENT PLACEMENT
     Dosage: 1 DAILY BEDTIME PO
     Route: 048
     Dates: start: 20060210, end: 20071015

REACTIONS (10)
  - ABDOMINAL PAIN UPPER [None]
  - FATIGUE [None]
  - GAIT DISTURBANCE [None]
  - HEADACHE [None]
  - MALAISE [None]
  - MUSCULAR WEAKNESS [None]
  - MUSCULOSKELETAL PAIN [None]
  - MYALGIA [None]
  - NECK PAIN [None]
  - PAIN IN EXTREMITY [None]
